FAERS Safety Report 20729541 (Version 3)
Quarter: 2022Q2

REPORT INFORMATION
  Report Type: Spontaneous
  Country: US (occurrence: US)
  Receive Date: 20220420
  Receipt Date: 20220509
  Transmission Date: 20220721
  Serious: No
  Sender: FDA-Public Use
  Company Number: US-GLAXOSMITHKLINE-US2022066686

PATIENT
  Age: 78 Year
  Sex: Female

DRUGS (1)
  1. ZEJULA [Suspect]
     Active Substance: NIRAPARIB
     Indication: Ovarian cancer
     Dosage: 200 MG, QD
     Dates: start: 20220408, end: 20220422

REACTIONS (9)
  - Disorientation [Unknown]
  - Dizziness [Unknown]
  - Oral pain [Unknown]
  - Dry mouth [Unknown]
  - Feeling abnormal [Unknown]
  - Platelet count decreased [Unknown]
  - Asthenia [Unknown]
  - Fatigue [Unknown]
  - Rash macular [Unknown]

NARRATIVE: CASE EVENT DATE: 20220401
